FAERS Safety Report 5534482-9 (Version None)
Quarter: 2007Q4

REPORT INFORMATION
  Report Type: 
  Country: None (occurrence: None)
  Receive Date: 20071205
  Receipt Date: 20071126
  Transmission Date: 20080405
  Serious: Yes (Hospitalization)
  Sender: FDA-Public Use
  Company Number: FR-ASTRAZENECA-2007CG01676

PATIENT
  Age: 29847 Day
  Sex: Female

DRUGS (5)
  1. INEXIUM [Suspect]
     Route: 048
     Dates: start: 20061014, end: 20061030
  2. FURADANTIN [Suspect]
     Dosage: 1DF FOUR TIMES A WEEK
     Route: 048
     Dates: start: 20060831, end: 20061030
  3. TOPAAL [Suspect]
     Route: 048
     Dates: start: 20061014, end: 20061030
  4. BACTRIM [Concomitant]
     Route: 042
     Dates: start: 20060817, end: 20060825
  5. LERCAN [Concomitant]
     Route: 048
     Dates: start: 19960101

REACTIONS (2)
  - LEUKOCYTOCLASTIC VASCULITIS [None]
  - PURPURA [None]
